FAERS Safety Report 21010232 (Version 2)
Quarter: 2023Q1

REPORT INFORMATION
  Report Type: 
  Country: US (occurrence: US)
  Receive Date: 20220627
  Receipt Date: 20230123
  Transmission Date: 20230417
  Serious: Yes (Hospitalization, Other)
  Sender: FDA-Public Use
  Company Number: US-C B Fleet Co Inc-202206-US-001895

PATIENT
  Age: 22 Month
  Sex: Female

DRUGS (1)
  1. LITTLE REMEDIES SORE THROAT POPS [Suspect]
     Active Substance: PECTIN
     Indication: Oropharyngeal pain
     Dosage: 3-5 POPS
     Route: 048

REACTIONS (11)
  - Mouth swelling [Recovered/Resolved]
  - Chapped lips [Recovered/Resolved]
  - Lip haemorrhage [Recovered/Resolved]
  - Stomatitis [Recovered/Resolved]
  - Rash [Recovered/Resolved]
  - Pyrexia [Recovered/Resolved]
  - Nausea [Recovered/Resolved]
  - Lethargy [Recovered/Resolved]
  - Weight decreased [Recovered/Resolved]
  - Decreased appetite [Recovered/Resolved]
  - Product administered to patient of inappropriate age [None]
